FAERS Safety Report 15281559 (Version 1)
Quarter: 2018Q3

REPORT INFORMATION
  Report Type: Spontaneous
  Country: GB (occurrence: GB)
  Receive Date: 20180815
  Receipt Date: 20180815
  Transmission Date: 20181010
  Serious: Yes (Other)
  Sender: FDA-Public Use
  Company Number: GB-TEVA-2018-GB-940903

PATIENT
  Age: 15 Year
  Sex: Female
  Weight: 55 kg

DRUGS (8)
  1. CETIRIZINE [Concomitant]
     Active Substance: CETIRIZINE HYDROCHLORIDE
     Dosage: 1 DOSAGE FORMS DAILY;
     Route: 065
     Dates: start: 20180427, end: 20180527
  2. MUPIROCIN. [Concomitant]
     Active Substance: MUPIROCIN
     Dosage: 2?3 TIMES/DAY.
     Dates: start: 20180427, end: 20180504
  3. MOMETASONE [Concomitant]
     Active Substance: MOMETASONE
     Dosage: 1 DOSAGE FORMS DAILY; IN EACH NOSTRIL.
     Route: 045
     Dates: start: 20180427
  4. PHENOXYMETHYLPENICILLIN [Suspect]
     Active Substance: PENICILLIN V
     Route: 065
     Dates: start: 20180705
  5. SALBUTAMOL [Concomitant]
     Active Substance: ALBUTEROL
     Dosage: ONE OR TWO PUFFS UP TO FOUR TIMES A DAY.
     Route: 055
     Dates: start: 20180705
  6. PARACETAMOL [Concomitant]
     Active Substance: ACETAMINOPHEN
     Dosage: TAKE 1 OR 2 4 TIMES/DAY.
     Dates: start: 20180427, end: 20180525
  7. CLARITHROMYCIN. [Concomitant]
     Active Substance: CLARITHROMYCIN
     Dates: start: 20180705
  8. FLUTICASONE FUROATE [Concomitant]
     Active Substance: FLUTICASONE FUROATE
     Dosage: 2 DOSAGE FORMS DAILY; IN EACH NOSTRIL.
     Route: 045
     Dates: start: 20180705

REACTIONS (2)
  - Pharyngeal oedema [Recovered/Resolved]
  - Throat irritation [Recovered/Resolved]

NARRATIVE: CASE EVENT DATE: 20180705
